FAERS Safety Report 15367410 (Version 3)
Quarter: 2018Q4

REPORT INFORMATION
  Report Type: Spontaneous
  Country: US (occurrence: US)
  Receive Date: 20180910
  Receipt Date: 20181002
  Transmission Date: 20190204
  Serious: Yes (Hospitalization)
  Sender: FDA-Public Use
  Company Number: US-VERTEX PHARMACEUTICALS-2018-006395

PATIENT
  Age: 22 Year
  Sex: Female

DRUGS (19)
  1. HYDROCORT                          /00028602/ [Concomitant]
  2. LEVOFLOXACIN. [Concomitant]
     Active Substance: LEVOFLOXACIN
  3. PROAIR HFA [Concomitant]
     Active Substance: ALBUTEROL SULFATE
  4. MONTELUKAST [Concomitant]
     Active Substance: MONTELUKAST SODIUM
  5. PERMETHRIN. [Concomitant]
     Active Substance: PERMETHRIN
  6. VITAMIN D                          /00107901/ [Concomitant]
     Active Substance: ERGOCALCIFEROL
  7. OMEPRAZOLE. [Concomitant]
     Active Substance: OMEPRAZOLE
  8. ZENPEP [Concomitant]
     Active Substance: PANCRELIPASE AMYLASE\PANCRELIPASE LIPASE\PANCRELIPASE PROTEASE
  9. NORETHINDRONE                      /00044901/ [Concomitant]
     Active Substance: NORETHINDRONE
  10. FLUCONAZOLE. [Concomitant]
     Active Substance: FLUCONAZOLE
  11. ORKAMBI [Suspect]
     Active Substance: IVACAFTOR\LUMACAFTOR
     Indication: CYSTIC FIBROSIS
     Dosage: 2 DOSAGE FORM (200/125 MG), BID
     Route: 048
     Dates: start: 20150721
  12. AZITHROMYCINE [Concomitant]
     Active Substance: AZITHROMYCIN
  13. METRONIDAZOL                       /00012501/ [Concomitant]
     Active Substance: METRONIDAZOLE
  14. PERTZYE [Concomitant]
     Active Substance: PANCRELIPASE AMYLASE\PANCRELIPASE LIPASE\PANCRELIPASE PROTEASE
  15. MEDROXYPR AC [Concomitant]
  16. CYPROHEPTAD [Concomitant]
  17. CAYSTON [Suspect]
     Active Substance: AZTREONAM
     Indication: CYSTIC FIBROSIS
     Dosage: 75 MG, TID. 28 DAYS ON AND 28 DAYS OFF
     Route: 055
     Dates: start: 20161130
  18. SODIUM CHLORIDE. [Concomitant]
     Active Substance: SODIUM CHLORIDE
  19. TOBI [Concomitant]
     Active Substance: TOBRAMYCIN

REACTIONS (1)
  - Pneumothorax spontaneous [Recovering/Resolving]

NARRATIVE: CASE EVENT DATE: 20180825
